FAERS Safety Report 8941787 (Version 1)
Quarter: 2012Q4

REPORT INFORMATION
  Report Type: 
  Country: JP (occurrence: JP)
  Receive Date: 20121203
  Receipt Date: 20121203
  Transmission Date: 20130627
  Serious: Yes (Other)
  Sender: FDA-Public Use
  Company Number: JP-ASTRAZENECA-2012SE73564

PATIENT
  Age: 6502 Day
  Sex: Male
  Weight: 59 kg

DRUGS (10)
  1. ANAPEINE [Suspect]
     Indication: NERVE BLOCK
     Route: 008
     Dates: start: 20120919, end: 20120919
  2. ANAPEINE [Suspect]
     Indication: EPIDURAL ANAESTHESIA
     Route: 053
     Dates: start: 20120919, end: 20120919
  3. ANAPEINE [Suspect]
     Indication: NERVE BLOCK
     Route: 053
     Dates: start: 20120919, end: 20120919
  4. DIPRIVAN KIT [Concomitant]
     Indication: ANAESTHESIA PROCEDURE
     Route: 042
     Dates: start: 20120919, end: 20120919
  5. ESLAX [Concomitant]
     Indication: ANAESTHESIA PROCEDURE
     Route: 042
     Dates: start: 20120919, end: 20120919
  6. FENTANYL [Concomitant]
     Indication: ANAESTHESIA PROCEDURE
     Route: 042
     Dates: start: 20120919, end: 20120919
  7. EPHEDRIN [Concomitant]
     Indication: ANAESTHESIA PROCEDURE
     Route: 042
     Dates: start: 20120919, end: 20120919
  8. RASENAZOLIN [Concomitant]
     Indication: ANAESTHESIA PROCEDURE
     Route: 042
     Dates: start: 20120919, end: 20120919
  9. BRIDION [Concomitant]
     Indication: ANAESTHESIA PROCEDURE
     Route: 042
     Dates: start: 20120919, end: 20120919
  10. ANAPEINE [Suspect]
     Indication: EPIDURAL ANAESTHESIA
     Route: 008
     Dates: start: 20120919, end: 20120919

REACTIONS (2)
  - Toxicity to various agents [Recovering/Resolving]
  - Dyskinesia [Recovering/Resolving]
